FAERS Safety Report 16420632 (Version 1)
Quarter: 2019Q2

REPORT INFORMATION
  Report Type: Spontaneous
  Country: GB (occurrence: GB)
  Receive Date: 20190612
  Receipt Date: 20190612
  Transmission Date: 20190711
  Serious: Yes (Disabling)
  Sender: FDA-Public Use
  Company Number: GB-JNJFOC-20190612491

PATIENT
  Age: 54 Year
  Sex: Female
  Weight: 71 kg

DRUGS (5)
  1. TOPIRAMATE. [Suspect]
     Active Substance: TOPIRAMATE
     Indication: VERTIGO
     Route: 048
     Dates: start: 20190412
  2. ZONISAMIDE. [Concomitant]
     Active Substance: ZONISAMIDE
     Route: 065
     Dates: start: 20190510
  3. FOLIC ACID. [Concomitant]
     Active Substance: FOLIC ACID
     Route: 065
     Dates: start: 20181217
  4. NORTRIPTYLINE [Concomitant]
     Active Substance: NORTRIPTYLINE
     Route: 065
     Dates: start: 20181019, end: 20190312
  5. BISOPROLOL [Concomitant]
     Active Substance: BISOPROLOL
     Route: 065
     Dates: start: 20190121

REACTIONS (4)
  - Product use in unapproved indication [Unknown]
  - Nausea [Recovered/Resolved]
  - Off label use [Unknown]
  - Gastrooesophageal reflux disease [Unknown]

NARRATIVE: CASE EVENT DATE: 20190412
